FAERS Safety Report 16729908 (Version 1)
Quarter: 2019Q3

REPORT INFORMATION
  Report Type: Spontaneous
  Country: US (occurrence: US)
  Receive Date: 20190705
  Receipt Date: 20190705
  Transmission Date: 20191005
  Serious: Yes (Hospitalization)
  Sender: FDA-Public Use
  Company Number: None

PATIENT
  Sex: Female

DRUGS (5)
  1. FLUOXETINE CAP [Concomitant]
  2. ALPRAZOLAM TAB [Concomitant]
  3. PRAZOSIN HCL CAP [Concomitant]
  4. ESBRIET [Suspect]
     Active Substance: PIRFENIDONE
     Indication: IDIOPATHIC PULMONARY FIBROSIS
     Dosage: TAKE 1 TABELET PO TID DAYS 1-7 THEN 2 TABS TID DAYS 8-14 THEN 3 TABLETS TID THEREAFTER
     Dates: start: 20190614
  5. CLONIDINE TAB [Concomitant]

REACTIONS (1)
  - Respiratory disorder [None]
